FAERS Safety Report 4550730-6 (Version None)
Quarter: 2004Q4

REPORT INFORMATION
  Report Type: 
  Country: None (occurrence: None)
  Receive Date: 20041217
  Receipt Date: 20040927
  Transmission Date: 20050328
  Serious: No
  Sender: FDA-Public Use
  Company Number: 2004-BP-08945BP

PATIENT
  Age: 65 Year
  Sex: Female

DRUGS (3)
  1. SPIRIVA [Suspect]
     Indication: ASTHMA
     Dosage: 18 MCG (18 MCG) IH
     Route: 055
     Dates: start: 20040924
  2. SINGULAIR (MONTELEUKAST) [Concomitant]
  3. PROTONIX [Concomitant]

REACTIONS (2)
  - COUGH [None]
  - HOARSENESS [None]
